FAERS Safety Report 8176410-6 (Version None)
Quarter: 2012Q1

REPORT INFORMATION
  Report Type: 
  Country: None (occurrence: None)
  Receive Date: 20120228
  Receipt Date: 20120216
  Transmission Date: 20120608
  Serious: Yes (Hospitalization)
  Sender: FDA-Public Use
  Company Number: 2011SP044702

PATIENT
  Age: 31 Year
  Sex: Female
  Weight: 58.9676 kg

DRUGS (3)
  1. NUVARING [Suspect]
  2. LEVOTHYROXINE SODIUM [Concomitant]
  3. NUVARING [Suspect]
     Indication: CONTRACEPTION
     Dates: start: 20090805, end: 20090925

REACTIONS (22)
  - MENTAL DISORDER [None]
  - SURGERY [None]
  - MESENTERIC VEIN THROMBOSIS [None]
  - EMOTIONAL DISORDER [None]
  - IRON DEFICIENCY ANAEMIA [None]
  - TONSILLAR HYPERTROPHY [None]
  - SOFT TISSUE MASS [None]
  - BACTERIAL TEST POSITIVE [None]
  - SINUSITIS [None]
  - CONTUSION [None]
  - OVARIAN CYST [None]
  - NASAL TURBINATE HYPERTROPHY [None]
  - NASAL SEPTUM DEVIATION [None]
  - ROAD TRAFFIC ACCIDENT [None]
  - HYPERCOAGULATION [None]
  - VOMITING [None]
  - PYELONEPHRITIS [None]
  - MULTIPLE INJURIES [None]
  - RHINITIS [None]
  - ABDOMINAL PAIN [None]
  - NAUSEA [None]
  - LYMPHADENITIS [None]
